FAERS Safety Report 25444037 (Version 1)
Quarter: 2025Q2

REPORT INFORMATION
  Report Type: Report from Study
  Country: US (occurrence: US)
  Receive Date: 20250617
  Receipt Date: 20250617
  Transmission Date: 20250716
  Serious: Yes (Other)
  Sender: TAKEDA
  Company Number: US-TAKEDA-2024TUS102992

PATIENT
  Age: 52 Year
  Sex: Male

DRUGS (4)
  1. FRUQUINTINIB [Suspect]
     Active Substance: FRUQUINTINIB
     Indication: Colon cancer
     Dosage: 3 MILLIGRAM, QD
     Dates: start: 20241001
  2. FRUQUINTINIB [Suspect]
     Active Substance: FRUQUINTINIB
     Dosage: 3 MILLIGRAM, QD
     Dates: end: 20250106
  3. LONSURF [Suspect]
     Active Substance: TIPIRACIL HYDROCHLORIDE\TRIFLURIDINE
     Indication: Colon cancer
  4. LONSURF [Suspect]
     Active Substance: TIPIRACIL HYDROCHLORIDE\TRIFLURIDINE
     Dosage: 75 MILLIGRAM, BID
     Dates: start: 20250110

REACTIONS (6)
  - Colon cancer [Unknown]
  - Dry skin [Unknown]
  - Nausea [Unknown]
  - Vomiting [Unknown]
  - Fatigue [Unknown]
  - Drug ineffective [Unknown]

NARRATIVE: CASE EVENT DATE: 20250117
